FAERS Safety Report 8471451-3 (Version None)
Quarter: 2012Q2

REPORT INFORMATION
  Report Type: 
  Country: None (occurrence: None)
  Receive Date: 20120627
  Receipt Date: 20120622
  Transmission Date: 20120825
  Serious: Yes (Other)
  Sender: FDA-Public Use
  Company Number: PHHY2012BR053728

PATIENT
  Age: 12 Month
  Sex: Female
  Weight: 7 kg

DRUGS (2)
  1. CORTICOSTEROIDS [Concomitant]
     Indication: LIVER TRANSPLANT
     Dosage: UNK
  2. MYCOPHENOLATE MOFETIL [Suspect]
     Indication: LIVER TRANSPLANT

REACTIONS (6)
  - HEPATIC NECROSIS [None]
  - PLEURAL EFFUSION [None]
  - HEPATIC VEIN OCCLUSION [None]
  - ASCITES [None]
  - LIVER TRANSPLANT REJECTION [None]
  - RESPIRATORY FAILURE [None]
